FAERS Safety Report 7024550-7 (Version None)
Quarter: 2010Q4

REPORT INFORMATION
  Report Type: 
  Country: None (occurrence: None)
  Receive Date: 20101001
  Receipt Date: 20100629
  Transmission Date: 20110411
  Serious: No
  Sender: FDA-Public Use
  Company Number: US-TYCO HEALTHCARE/MALLINCKRODT-T201001549

PATIENT
  Age: 65 Year
  Sex: Male

DRUGS (3)
  1. TUSSICAPS EXTENDED-RELEASE [Suspect]
     Indication: COUGH
     Dosage: 2 TABLETS, QD
     Route: 048
     Dates: start: 20100625
  2. CLARITIN                           /00917501/ [Concomitant]
     Dosage: 1 UNK, BID
  3. ANTIBIOTICS [Concomitant]
     Dosage: 1 UNK, QD

REACTIONS (1)
  - CONSTIPATION [None]
